FAERS Safety Report 5679106-5 (Version None)
Quarter: 2008Q1

REPORT INFORMATION
  Report Type: 
  Country: None (occurrence: None)
  Receive Date: 20080325
  Receipt Date: 20080319
  Transmission Date: 20080703
  Serious: Yes (Death, Hospitalization)
  Sender: FDA-Public Use
  Company Number: CH-BRISTOL-MYERS SQUIBB COMPANY-14120596

PATIENT
  Age: 82 Year
  Sex: Male

DRUGS (14)
  1. TRITTICO [Suspect]
     Dosage: TAKEN AS 100 MG TABS; FOR 2 YEARS.
     Route: 048
     Dates: start: 20050101
  2. RISPERDAL [Suspect]
     Dosage: TAKEN AS TABS; FOR 2 YEARS.
     Dates: start: 20050101, end: 20070718
  3. TORSEMIDE [Concomitant]
     Dates: start: 20070714, end: 20070718
  4. NEURONTIN [Concomitant]
     Dates: start: 20050101, end: 20070718
  5. DILTIAZEM [Concomitant]
     Dates: start: 20050101, end: 20070718
  6. NEXIUM [Concomitant]
     Dates: start: 20050101, end: 20070718
  7. DUSPATALIN [Concomitant]
     Dates: start: 20050101, end: 20070718
  8. DIGITALINE NATIVELLE [Concomitant]
     Dates: start: 20050101, end: 20070718
  9. ALDACTONE [Concomitant]
     Dates: start: 20070714, end: 20070718
  10. SINTROM [Concomitant]
     Dates: start: 20050101, end: 20070718
  11. PULMICORT [Concomitant]
     Dates: start: 20070713, end: 20070718
  12. AUGMENTIN '125' [Concomitant]
     Dates: start: 20070716, end: 20070717
  13. TIENAM [Concomitant]
     Dates: start: 20070717, end: 20070720
  14. DOSPIR [Concomitant]

REACTIONS (7)
  - BLOOD CREATINE PHOSPHOKINASE INCREASED [None]
  - BRONCHOPNEUMONIA [None]
  - DEHYDRATION [None]
  - NEUROLEPTIC MALIGNANT SYNDROME [None]
  - PYREXIA [None]
  - RENAL FAILURE ACUTE [None]
  - SYSTEMIC INFLAMMATORY RESPONSE SYNDROME [None]
